FAERS Safety Report 8272395-2 (Version None)
Quarter: 2012Q2

REPORT INFORMATION
  Report Type: 
  Country: None (occurrence: None)
  Receive Date: 20120410
  Receipt Date: 20120316
  Transmission Date: 20120825
  Serious: Yes (Other)
  Sender: FDA-Public Use
  Company Number: PHHY2012US029078

PATIENT
  Sex: Female

DRUGS (2)
  1. BUFFERIN [Suspect]
     Indication: MYALGIA
  2. BUFFERIN [Suspect]
     Indication: HEADACHE
     Route: 048

REACTIONS (1)
  - DRUG DEPENDENCE [None]
